FAERS Safety Report 7214084-9 (Version None)
Quarter: 2010Q4

REPORT INFORMATION
  Report Type: 
  Country: None (occurrence: None)
  Receive Date: 20101227
  Receipt Date: 20101112
  Transmission Date: 20110411
  Serious: Yes (Hospitalization)
  Sender: FDA-Public Use
  Company Number: 018745

PATIENT
  Sex: Female
  Weight: 95 kg

DRUGS (5)
  1. VIMPAT [Suspect]
     Indication: EPILEPSY
     Dosage: (500 MG, SIGNEL DOSE: 250/300 ORAL), (150 MG BID ORAL)
     Route: 048
     Dates: start: 20100501, end: 20100716
  2. VIMPAT [Suspect]
     Indication: EPILEPSY
     Dosage: (500 MG, SIGNEL DOSE: 250/300 ORAL), (150 MG BID ORAL)
     Route: 048
     Dates: start: 20100717
  3. ZONEGRAN [Concomitant]
  4. RISPERDAL [Concomitant]
  5. ZIPRASIDONE HCL [Concomitant]

REACTIONS (1)
  - ENCEPHALOPATHY [None]
